FAERS Safety Report 9608432 (Version 7)
Quarter: 2014Q2

REPORT INFORMATION
  Report Type: Spontaneous
  Country: US (occurrence: US)
  Receive Date: 20131009
  Receipt Date: 20140430
  Transmission Date: 20141212
  Serious: Yes (Hospitalization, Other)
  Sender: FDA-Public Use
  Company Number: US-009507513-1310USA001528

PATIENT
  Age: 63 Year
  Sex: Female

DRUGS (9)
  1. PEGINTRON [Suspect]
     Indication: HEPATITIS C
     Dosage: REDIPEN,DOSE: 0.5 ML,  Q7DAYS
     Dates: start: 20130922, end: 20140405
  2. REBETOL [Suspect]
     Indication: HEPATITIS C
     Dosage: UNK, BID (TWICE A DAY)
     Route: 048
     Dates: start: 20130922
  3. REBETOL [Suspect]
     Dosage: UNK,  DOSE:200 MG DAILY
     Route: 048
     Dates: end: 20140405
  4. VICTRELIS [Suspect]
     Indication: HEPATITIS C
     Dosage: 2400MG;  TID (THREE TIMES A DAY)
     Route: 048
     Dates: start: 20131020, end: 20140405
  5. VITAMIN D (UNSPECIFIED) [Concomitant]
     Dosage: UNK, QD
  6. TEMAZEPAM [Concomitant]
     Dosage: UNK, QD
  7. TYLENOL [Concomitant]
     Dosage: UNK, AS NEEDED
  8. ASPIRIN [Concomitant]
     Dosage: UNK, QD
     Route: 048
  9. FERROUS SULFATE [Concomitant]
     Dosage: UNK, TWICE DAILY

REACTIONS (33)
  - Paranoia [Unknown]
  - Chest pain [Unknown]
  - Injection site pain [Unknown]
  - Pruritus [Unknown]
  - Nervousness [Unknown]
  - Pruritus generalised [Unknown]
  - Dry skin [Unknown]
  - Dry mouth [Unknown]
  - Decreased appetite [Unknown]
  - Decreased appetite [Unknown]
  - Hypoaesthesia [Unknown]
  - Paraesthesia [Unknown]
  - Pain [Unknown]
  - Fatigue [Unknown]
  - Dyspnoea [Unknown]
  - Blood test abnormal [Unknown]
  - Suicidal ideation [Unknown]
  - Depression [Unknown]
  - Hypoaesthesia [Unknown]
  - Anaemia [Unknown]
  - Poor quality sleep [Unknown]
  - Insomnia [Unknown]
  - Arthralgia [Unknown]
  - Fall [Unknown]
  - Head injury [Unknown]
  - Headache [Unknown]
  - Alopecia [Unknown]
  - Neuralgia [Unknown]
  - Arthralgia [Unknown]
  - Weight decreased [Unknown]
  - Decreased appetite [Unknown]
  - Fatigue [Unknown]
  - Myalgia [Unknown]
